FAERS Safety Report 24443345 (Version 1)
Quarter: 2024Q4

REPORT INFORMATION
  Report Type: Report from Study
  Country: BR (occurrence: BR)
  Receive Date: 20241016
  Receipt Date: 20241016
  Transmission Date: 20250114
  Serious: Yes (Other)
  Sender: UCB
  Company Number: BR-UCBSA-2024053261

PATIENT
  Sex: Female
  Weight: 50 kg

DRUGS (4)
  1. CERTOLIZUMAB PEGOL [Suspect]
     Active Substance: CERTOLIZUMAB PEGOL
     Indication: Rheumatoid arthritis
     Dosage: 1 DOSAGE FORM, EV 15 DAYS
     Route: 058
     Dates: start: 202204
  2. ADDERA CAL [Concomitant]
     Indication: Osteoporosis
     Dosage: 1 DOSAGE FORM, ONCE DAILY (QD)
     Route: 048
  3. ALPRAZOLAM [Concomitant]
     Active Substance: ALPRAZOLAM
     Indication: Depression
     Dosage: UNK, ONCE DAILY (QD)
     Route: 048
  4. DULOXETINE [Concomitant]
     Active Substance: DULOXETINE
     Indication: Depression
     Dosage: UNK, ONCE DAILY (QD)
     Route: 048

REACTIONS (4)
  - Breast mass [Unknown]
  - Deafness [Unknown]
  - Ear infection [Recovered/Resolved]
  - Osteoporosis [Not Recovered/Not Resolved]

NARRATIVE: CASE EVENT DATE: 20240101
